FAERS Safety Report 8421522-2 (Version None)
Quarter: 2012Q2

REPORT INFORMATION
  Report Type: 
  Country: None (occurrence: None)
  Receive Date: 20120608
  Receipt Date: 20120530
  Transmission Date: 20120825
  Serious: Yes (Other)
  Sender: FDA-Public Use
  Company Number: AU-SANOFI-AVENTIS-2012SA038309

PATIENT
  Sex: Female

DRUGS (5)
  1. LANTUS [Suspect]
     Route: 058
     Dates: start: 20111101
  2. ACETYLSALICYLIC ACID SRT [Concomitant]
  3. NOVORAPID [Concomitant]
  4. PERINDOPRIL ERBUMINE [Concomitant]
  5. CRESTOR [Concomitant]

REACTIONS (3)
  - OPTIC NEURITIS [None]
  - VISION BLURRED [None]
  - EYE DISORDER [None]
